FAERS Safety Report 24598357 (Version 5)
Quarter: 2024Q4

REPORT INFORMATION
  Report Type: Spontaneous
  Country: US (occurrence: US)
  Receive Date: 20241110
  Receipt Date: 20241230
  Transmission Date: 20250115
  Serious: Yes (Other)
  Sender: SANOFI AVENTIS
  Company Number: US-SA-2024SA306152

PATIENT
  Age: 58 Year
  Sex: Female

DRUGS (6)
  1. DUPIXENT [Suspect]
     Active Substance: DUPILUMAB
     Indication: Asthma
     Dosage: 600 MG, 1X
     Route: 058
     Dates: start: 20240910, end: 20240910
  2. DUPIXENT [Suspect]
     Active Substance: DUPILUMAB
     Dosage: 300 MG, QOW
     Route: 058
     Dates: start: 202409
  3. ALBUTEROL [Concomitant]
     Active Substance: ALBUTEROL
     Dosage: UNK
  4. BREYNA [Concomitant]
     Active Substance: BUDESONIDE\FORMOTEROL FUMARATE
     Dosage: UNK
  5. PEPCID [Concomitant]
     Active Substance: FAMOTIDINE
     Dosage: UNK
  6. BENADRYL [Concomitant]
     Active Substance: DIPHENHYDRAMINE HYDROCHLORIDE
     Dosage: UNK

REACTIONS (14)
  - Aspergillus infection [Unknown]
  - Sneezing [Unknown]
  - Pyrexia [Unknown]
  - Thyroid calcification [Unknown]
  - Abdominal pain upper [Unknown]
  - Rhinitis [Unknown]
  - Nasopharyngitis [Unknown]
  - Musculoskeletal chest pain [Unknown]
  - Insomnia [Unknown]
  - Hypersensitivity [Unknown]
  - Cough [Unknown]
  - Rhinorrhoea [Unknown]
  - Oropharyngeal pain [Unknown]
  - Dysphonia [Unknown]

NARRATIVE: CASE EVENT DATE: 20240101
